FAERS Safety Report 4483911-0 (Version None)
Quarter: 2004Q4

REPORT INFORMATION
  Report Type: 
  Country: None (occurrence: None)
  Receive Date: 20041022
  Receipt Date: 20041022
  Transmission Date: 20050328
  Serious: Yes (Life-Threatening, Disabling)
  Sender: FDA-Public Use
  Company Number: None

PATIENT
  Age: 52 Year
  Sex: Male
  Weight: 106.5953 kg

DRUGS (2)
  1. PROZAC [Suspect]
     Indication: PANIC ATTACK
     Dosage: 20 MG - 40 MG
     Dates: start: 20040401
  2. FLUOXETINE [Suspect]
     Indication: DEPRESSION
     Dosage: 60 MG - 80 MG
     Dates: start: 20040901

REACTIONS (2)
  - SUICIDAL IDEATION [None]
  - UNEVALUABLE EVENT [None]
